FAERS Safety Report 4340114-8 (Version None)
Quarter: 2004Q2

REPORT INFORMATION
  Report Type: 
  Country: None (occurrence: None)
  Receive Date: 20040416
  Receipt Date: 20040416
  Transmission Date: 20050107
  Serious: Yes (Hospitalization)
  Sender: FDA-Public Use
  Company Number: None

PATIENT
  Sex: Female
  Weight: 53.6 kg

DRUGS (5)
  1. PACLITAXEL [Suspect]
     Indication: BREAST CANCER METASTATIC
     Dosage: 146MG Q WKLY X 3 INTRAVENOUS
     Route: 042
     Dates: start: 20040302, end: 20040317
  2. OXYCODONE [Concomitant]
  3. COMPAZINE [Concomitant]
  4. ZOFRAN [Concomitant]
  5. ZOMETA [Concomitant]

REACTIONS (3)
  - BLOOD DISORDER [None]
  - NAUSEA [None]
  - VOMITING [None]
